FAERS Safety Report 6890686-4 (Version None)
Quarter: 2010Q3

REPORT INFORMATION
  Report Type: 
  Country: None (occurrence: None)
  Receive Date: 20100731
  Receipt Date: 20090210
  Transmission Date: 20110219
  Serious: No
  Sender: FDA-Public Use
  Company Number: US-PFIZER INC-2009169873

PATIENT
  Age: 89 Year

DRUGS (1)
  1. LIPITOR [Suspect]

REACTIONS (3)
  - CHEST PAIN [None]
  - HEADACHE [None]
  - INCORRECT DOSE ADMINISTERED [None]
